FAERS Safety Report 8988670 (Version 1)
Quarter: 2012Q4

REPORT INFORMATION
  Report Type: 
  Country: US (occurrence: US)
  Receive Date: 20121228
  Receipt Date: 20121228
  Transmission Date: 20130627
  Serious: Yes (Other)
  Sender: FDA-Public Use
  Company Number: US-SANOFI-AVENTIS-2012SA093704

PATIENT
  Age: 64 Year
  Sex: Female

DRUGS (2)
  1. ALLEGRA D [Suspect]
     Indication: NASAL CONGESTION
     Route: 048
     Dates: start: 20121217
  2. ANTIHYPERTENSIVES [Concomitant]

REACTIONS (6)
  - Tympanic membrane perforation [Unknown]
  - Laryngitis [Unknown]
  - Nervousness [Unknown]
  - Accidental overdose [Unknown]
  - Insomnia [Unknown]
  - Hypertension [Unknown]
